FAERS Safety Report 15194754 (Version 1)
Quarter: 2018Q3

REPORT INFORMATION
  Report Type: Spontaneous
  Country: US (occurrence: US)
  Receive Date: 20180626
  Receipt Date: 20180626
  Transmission Date: 20181010
  Serious: Yes (Life-Threatening, Hospitalization, Disabling)
  Sender: FDA-Public Use
  Company Number: None

PATIENT
  Age: 63 Year
  Sex: Female
  Weight: 61.3 kg

DRUGS (13)
  1. LISINOPRIL. [Concomitant]
     Active Substance: LISINOPRIL
  2. HYDROMORPHONE [Suspect]
     Active Substance: HYDROMORPHONE
     Indication: ARTHRALGIA
  3. CALCIUM CARBONATE 500MG [Concomitant]
  4. ONDANSETRON 4MG IV [Concomitant]
  5. FAMOTIDINE 10MG [Concomitant]
  6. GABAPENTIN 300MG [Concomitant]
     Active Substance: GABAPENTIN
  7. FENTANYL 50 MCG IV [Concomitant]
  8. DIVALPROEX 500MG DR [Concomitant]
  9. LACTATED RINGERS 125 ML/HR [Concomitant]
  10. CARVEDILOL 3.125MG [Concomitant]
  11. SENNA 17.2MG [Concomitant]
  12. DOCUSATE 100MG [Concomitant]
  13. NORMAL SALINE 90ML/HR [Concomitant]

REACTIONS (3)
  - Pulseless electrical activity [None]
  - Cardiac arrest [None]
  - Brain injury [None]

NARRATIVE: CASE EVENT DATE: 20180622
